FAERS Safety Report 4661935-8 (Version None)
Quarter: 2005Q2

REPORT INFORMATION
  Report Type: 
  Country: None (occurrence: None)
  Receive Date: 20050513
  Receipt Date: 20050510
  Transmission Date: 20051028
  Serious: Yes (Other)
  Sender: FDA-Public Use
  Company Number: GB-MERCK-0505GBR00092

PATIENT
  Age: 23 Year
  Sex: Female
  Weight: 55 kg

DRUGS (3)
  1. SINGULAIR [Suspect]
     Indication: ASTHMA
     Route: 048
     Dates: end: 20050504
  2. ERYTHROMYCIN [Concomitant]
     Route: 065
     Dates: start: 20030428
  3. FLUTICASONE PROPIONATE [Concomitant]
     Route: 065
     Dates: end: 20050321

REACTIONS (1)
  - SLEEP WALKING [None]
